FAERS Safety Report 17006773 (Version 1)
Quarter: 2019Q4

REPORT INFORMATION
  Report Type: Spontaneous
  Country: US (occurrence: US)
  Receive Date: 20191107
  Receipt Date: 20191107
  Transmission Date: 20200122
  Serious: No
  Sender: FDA-Public Use
  Company Number: US-TARO-2019TAR00308

PATIENT
  Sex: Male

DRUGS (1)
  1. MUPIROCIN OINTMENT USP 2% [Suspect]
     Active Substance: MUPIROCIN
     Indication: INFECTION PROPHYLAXIS
     Dosage: UNK
     Route: 045

REACTIONS (3)
  - Product administered at inappropriate site [Not Recovered/Not Resolved]
  - Rhinalgia [Unknown]
  - Off label use [Not Recovered/Not Resolved]
